FAERS Safety Report 18764198 (Version 1)
Quarter: 2021Q1

REPORT INFORMATION
  Report Type: Spontaneous
  Country: US (occurrence: US)
  Receive Date: 20210120
  Receipt Date: 20210120
  Transmission Date: 20210419
  Serious: No
  Sender: FDA-Public Use
  Company Number: US-TAKEDA-US202031737

PATIENT
  Sex: Female

DRUGS (4)
  1. GATTEX [Suspect]
     Active Substance: TEDUGLUTIDE\WATER
     Indication: SHORT-BOWEL SYNDROME
     Dosage: 0.374 MILLIGRAM, 1X/DAY:QD
     Route: 050
     Dates: start: 20200804
  2. GATTEX [Suspect]
     Active Substance: TEDUGLUTIDE\WATER
     Indication: SHORT-BOWEL SYNDROME
     Dosage: 0.374 MILLIGRAM, 1X/DAY:QD
     Route: 050
     Dates: start: 20200804
  3. GATTEX [Suspect]
     Active Substance: TEDUGLUTIDE\WATER
     Indication: SHORT-BOWEL SYNDROME
     Dosage: 0.374 MILLIGRAM, 1X/DAY:QD
     Route: 050
     Dates: start: 20200804
  4. GATTEX [Suspect]
     Active Substance: TEDUGLUTIDE\WATER
     Indication: SHORT-BOWEL SYNDROME
     Dosage: 0.374 MILLIGRAM, 1X/DAY:QD
     Route: 050
     Dates: start: 20200804

REACTIONS (3)
  - Abdominal pain [Unknown]
  - Fistula [Unknown]
  - Weight decreased [Unknown]
